FAERS Safety Report 11400259 (Version 1)
Quarter: 2015Q3

REPORT INFORMATION
  Report Type: Spontaneous
  Country: US (occurrence: None)
  Receive Date: 20150819
  Receipt Date: 20150819
  Transmission Date: 20151125
  Serious: No
  Sender: FDA-Public Use
  Company Number: None

PATIENT
  Sex: Female

DRUGS (12)
  1. IBRANCE [Suspect]
     Active Substance: PALBOCICLIB
     Indication: BREAST CANCER
     Dosage: 1-21 THEN 7 OFF
     Route: 048
     Dates: start: 20150723
  2. IPRATROPIUM [Concomitant]
     Active Substance: IPRATROPIUM
  3. ADVAIR HFA [Concomitant]
     Active Substance: FLUTICASONE PROPIONATE\SALMETEROL XINAFOATE
  4. SINGULAIR [Concomitant]
     Active Substance: MONTELUKAST SODIUM
  5. METOPROLOL TARTRATE. [Concomitant]
     Active Substance: METOPROLOL TARTRATE
  6. LOVASTATIN. [Concomitant]
     Active Substance: LOVASTATIN
  7. LETROZOLE. [Concomitant]
     Active Substance: LETROZOLE
  8. COUMADIN [Concomitant]
     Active Substance: WARFARIN SODIUM
  9. LORATADINE. [Concomitant]
     Active Substance: LORATADINE
  10. ALBUTEROL. [Concomitant]
     Active Substance: ALBUTEROL
  11. CALCIUM [Concomitant]
     Active Substance: CALCIUM
  12. LASIX [Concomitant]
     Active Substance: FUROSEMIDE

REACTIONS (2)
  - Dizziness [None]
  - Fatigue [None]
